FAERS Safety Report 20734532 (Version 1)
Quarter: 2022Q2

REPORT INFORMATION
  Report Type: Spontaneous
  Country: IT (occurrence: IT)
  Receive Date: 20220421
  Receipt Date: 20220421
  Transmission Date: 20220721
  Serious: Yes (Other)
  Sender: FDA-Public Use
  Company Number: IT-MYLANLABS-2022M1029219

PATIENT
  Age: 63 Year
  Sex: Female

DRUGS (5)
  1. EVEROLIMUS [Suspect]
     Active Substance: EVEROLIMUS
     Indication: Vaginal adenocarcinoma
     Dosage: 10 MILLIGRAM, QD
     Route: 065
     Dates: start: 201908, end: 20201117
  2. CISPLATIN [Suspect]
     Active Substance: CISPLATIN
     Indication: Vaginal adenocarcinoma
     Dosage: 50 MILLIGRAM/SQ. METER, QW (CYCLICAL)
     Route: 065
     Dates: start: 2017
  3. TAXOL [Suspect]
     Active Substance: PACLITAXEL
     Indication: Vaginal adenocarcinoma
     Dosage: 90 MILLIGRAM/SQ. METER, QW (CYCLICAL)
     Route: 065
     Dates: start: 2017
  4. NAVELBINE [Suspect]
     Active Substance: VINORELBINE TARTRATE
     Indication: Vaginal adenocarcinoma
     Dosage: 240 MILLIGRAM (CYCLICAL)
     Route: 048
     Dates: start: 20180915
  5. NIVOLUMAB [Suspect]
     Active Substance: NIVOLUMAB
     Indication: Vaginal adenocarcinoma
     Dosage: 240 MILLIGRAM (CYCLICAL)
     Route: 065
     Dates: start: 20180915

REACTIONS (2)
  - Drug resistance [Unknown]
  - Pneumonitis [Recovering/Resolving]

NARRATIVE: CASE EVENT DATE: 20190101
